FAERS Safety Report 17785412 (Version 3)
Quarter: 2020Q3

REPORT INFORMATION
  Report Type: Report from Study
  Country: US (occurrence: US)
  Receive Date: 20200514
  Receipt Date: 20200704
  Transmission Date: 20201102
  Serious: Yes (Other)
  Sender: FDA-Public Use
  Company Number: US-ROCHE-2596864

PATIENT
  Age: 43 Year
  Sex: Female
  Weight: 65.38 kg

DRUGS (2)
  1. LEVOTHYROXINE. [Concomitant]
     Active Substance: LEVOTHYROXINE
     Dosage: PATIENT STATED 1 TABLET DAILY, 2 TABS ON SUNDAY
     Route: 048
  2. OCREVUS [Suspect]
     Active Substance: OCRELIZUMAB
     Indication: RELAPSING-REMITTING MULTIPLE SCLEROSIS
     Route: 065
     Dates: start: 201903

REACTIONS (5)
  - Thyroid cancer [Not Recovered/Not Resolved]
  - Tumour marker increased [Unknown]
  - Thyroid cancer recurrent [Recovered/Resolved]
  - Multiple sclerosis relapse [Recovered/Resolved]
  - Lymphadenopathy [Recovered/Resolved]

NARRATIVE: CASE EVENT DATE: 201912
